FAERS Safety Report 15824010 (Version 2)
Quarter: 2020Q1

REPORT INFORMATION
  Report Type: Spontaneous
  Country: US (occurrence: US)
  Receive Date: 20190114
  Receipt Date: 20200121
  Transmission Date: 20200409
  Serious: No
  Sender: FDA-Public Use
  Company Number: US-PFIZER INC-2019006593

PATIENT
  Sex: Female

DRUGS (1)
  1. EUCRISA [Suspect]
     Active Substance: CRISABOROLE
     Indication: ECZEMA
     Dosage: 1X/DAY (USED IT ONCE)

REACTIONS (4)
  - Exposure via ingestion [Unknown]
  - Intentional product use issue [Unknown]
  - Exposure via eye contact [Unknown]
  - Accidental exposure to product [Unknown]
